FAERS Safety Report 17093580 (Version 1)
Quarter: 2019Q4

REPORT INFORMATION
  Report Type: Spontaneous
  Country: JP (occurrence: JP)
  Receive Date: 20191129
  Receipt Date: 20191129
  Transmission Date: 20200122
  Serious: Yes (Other)
  Sender: FDA-Public Use
  Company Number: JP-009507513-1911JPN003560J

PATIENT
  Age: 50 Year
  Sex: Male

DRUGS (2)
  1. CUBICIN [Suspect]
     Active Substance: DAPTOMYCIN
     Indication: DIABETIC GANGRENE
     Dosage: UNK
     Route: 042
  2. CUBICIN [Suspect]
     Active Substance: DAPTOMYCIN
     Indication: CELLULITIS

REACTIONS (3)
  - Lung disorder [Recovering/Resolving]
  - Pyrexia [Unknown]
  - Hypoxia [Unknown]
